FAERS Safety Report 9034268 (Version 1)
Quarter: 2013Q1

REPORT INFORMATION
  Report Type: Spontaneous
  Country: CA (occurrence: CA)
  Receive Date: 20130128
  Receipt Date: 20130128
  Transmission Date: 20140127
  Serious: Yes (Hospitalization, Other)
  Sender: FDA-Public Use
  Company Number: CA-AMGEN-US154536

PATIENT
  Age: 47 Year
  Sex: Female

DRUGS (4)
  1. ENBREL [Suspect]
     Indication: RHEUMATOID ARTHRITIS
     Dosage: 25 MG, 2 TIMES/WK
     Route: 058
     Dates: start: 20030429, end: 20051014
  2. NADOLOL [Concomitant]
  3. METHYLPREDNISOLONE [Concomitant]
     Dosage: 8 MG, QD
     Dates: start: 1996
  4. LANSOPRAZOLE [Concomitant]

REACTIONS (3)
  - Myelitis [Not Recovered/Not Resolved]
  - Urinary tract infection [Unknown]
  - Upper respiratory tract infection [Recovered/Resolved]
